FAERS Safety Report 7041617-8 (Version None)
Quarter: 2010Q4

REPORT INFORMATION
  Report Type: 
  Country: None (occurrence: None)
  Receive Date: 20101013
  Receipt Date: 20091013
  Transmission Date: 20110411
  Serious: No
  Sender: FDA-Public Use
  Company Number: US-ASTRAZENECA-2009SE19735

PATIENT
  Age: 43 Year
  Sex: Female
  Weight: 52.2 kg

DRUGS (2)
  1. SYMBICORT [Suspect]
     Indication: ASTHMA
     Dosage: 2 PUFFS
     Route: 055
  2. SINGULAIR [Concomitant]
     Indication: ASTHMA

REACTIONS (2)
  - ASTHMA [None]
  - DRUG DOSE OMISSION [None]
